FAERS Safety Report 11474225 (Version 1)
Quarter: 2015Q3

REPORT INFORMATION
  Report Type: Spontaneous
  Country: CA (occurrence: CA)
  Receive Date: 20150908
  Receipt Date: 20150908
  Transmission Date: 20151125
  Serious: No
  Sender: FDA-Public Use
  Company Number: CA-JAZZ-2014-CA-013237

PATIENT
  Age: 63 Year
  Sex: Female

DRUGS (18)
  1. XYREM [Suspect]
     Active Substance: SODIUM OXYBATE
     Indication: FIBROMYALGIA
     Dosage: 2.25 G, BID
     Route: 048
     Dates: start: 20080324, end: 20080409
  2. XYREM [Suspect]
     Active Substance: SODIUM OXYBATE
     Dosage: 4 G, BID
     Route: 048
     Dates: start: 20081029, end: 20090224
  3. XYREM [Suspect]
     Active Substance: SODIUM OXYBATE
     Dosage: 4.5 G, FIRST DOSE
     Route: 048
     Dates: start: 20080722, end: 20080922
  4. XYREM [Suspect]
     Active Substance: SODIUM OXYBATE
     Dosage: 2.25 G, THIRD DOSE
     Route: 048
     Dates: start: 20090225, end: 20100105
  5. XYREM [Suspect]
     Active Substance: SODIUM OXYBATE
     Dosage: 3.75 G, BID
     Route: 048
     Dates: start: 20080604, end: 20080721
  6. XYREM [Suspect]
     Active Substance: SODIUM OXYBATE
     Dosage: 3 G, BID
     Route: 048
     Dates: start: 20080410, end: 20080430
  7. XYREM [Suspect]
     Active Substance: SODIUM OXYBATE
     Dosage: 4 G, SECOND DOSE
     Route: 048
     Dates: start: 20080722, end: 20080922
  8. XYREM [Suspect]
     Active Substance: SODIUM OXYBATE
     Dosage: 2.83 G, TID
     Route: 048
     Dates: start: 20130213, end: 20130820
  9. XYREM [Suspect]
     Active Substance: SODIUM OXYBATE
     Dosage: 1.75 G, THIRD DOSE
     Route: 048
     Dates: start: 20130821, end: 20140818
  10. XYREM [Suspect]
     Active Substance: SODIUM OXYBATE
     Dosage: UNKNOWN DOSE
     Route: 048
  11. XYREM [Suspect]
     Active Substance: SODIUM OXYBATE
     Dosage: 4 G, FIRST DOSE AND SECOND DOSE
     Route: 048
     Dates: start: 20090225, end: 20100105
  12. XYREM [Suspect]
     Active Substance: SODIUM OXYBATE
     Dosage: 3.5 G, FIRST DOSE AND SECOND DOSE
     Route: 048
     Dates: start: 20101202, end: 20130212
  13. XYREM [Suspect]
     Active Substance: SODIUM OXYBATE
     Dosage: 1.75 G, THIRD DOSE
     Route: 048
     Dates: start: 20101202, end: 20130212
  14. XYREM [Suspect]
     Active Substance: SODIUM OXYBATE
     Dosage: 3.5 G, FIRST DOSE AND SECOND DOSE
     Route: 048
     Dates: start: 20130821, end: 20140818
  15. XYREM [Suspect]
     Active Substance: SODIUM OXYBATE
     Dosage: 3 G, SECOND DOSE
     Route: 048
     Dates: start: 20080501, end: 20080603
  16. XYREM [Suspect]
     Active Substance: SODIUM OXYBATE
     Dosage: 4.5 G, BID
     Route: 048
     Dates: start: 20080923, end: 20081028
  17. XYREM [Suspect]
     Active Substance: SODIUM OXYBATE
     Dosage: 9 G, TOTAL NIGHLY DOSE
     Route: 048
     Dates: start: 20100106, end: 20101201
  18. XYREM [Suspect]
     Active Substance: SODIUM OXYBATE
     Dosage: 3.75 G, FIRST DOSE
     Route: 048
     Dates: start: 20080501, end: 20080603

REACTIONS (4)
  - Product use issue [Unknown]
  - Feeling abnormal [Not Recovered/Not Resolved]
  - Drug dose omission [Unknown]
  - Treatment noncompliance [Unknown]

NARRATIVE: CASE EVENT DATE: 20150223
